FAERS Safety Report 9122817 (Version 1)
Quarter: 2013Q1

REPORT INFORMATION
  Report Type: Spontaneous
  Country: US (occurrence: None)
  Receive Date: 20130131
  Receipt Date: 20130131
  Transmission Date: 20140127
  Serious: Yes (Hospitalization, Other)
  Sender: FDA-Public Use
  Company Number: 2013SUN00043

PATIENT
  Age: 8 Year
  Sex: Male

DRUGS (6)
  1. LITHIUM CARBONATE TABLETS, USP 300MG (LITHIUM CARBONATE) TABLET, 300MG [Suspect]
     Indication: BIPOLAR DISORDER
     Route: 048
  2. LITHIUM CARBONATE TABLETS, USP 300MG (LITHIUM CARBONATE) TABLET, 300MG [Suspect]
     Indication: ATTENTION DEFICIT/HYPERACTIVITY DISORDER
     Route: 048
  3. LISDEXAMFETAMINE (LISDEXAMFETAMINE DIMESYLATE) [Suspect]
     Indication: BIPOLAR DISORDER
     Dosage: 50 MG, IN MORNING, UNKNOWN
  4. LISDEXAMFETAMINE (LISDEXAMFETAMINE DIMESYLATE) [Suspect]
     Indication: ATTENTION DEFICIT/HYPERACTIVITY DISORDER
     Dosage: 50 MG, IN MORNING, UNKNOWN
  5. GUAIPHENESIN (GUAIPHENESIN EXTENDED RELEASE) [Suspect]
     Indication: BIPOLAR DISORDER
     Route: 048
  6. GUAIPHENESIN (GUAIPHENESIN EXTENDED RELEASE) [Suspect]
     Indication: ATTENTION DEFICIT/HYPERACTIVITY DISORDER
     Route: 048

REACTIONS (7)
  - Dyskinesia [None]
  - Chest pain [None]
  - Hypertension [None]
  - Tachycardia [None]
  - Dyspnoea [None]
  - Anxiety [None]
  - Logorrhoea [None]
